FAERS Safety Report 9199137 (Version 3)
Quarter: 2013Q2

REPORT INFORMATION
  Report Type: Spontaneous
  Country: US (occurrence: US)
  Receive Date: 20130329
  Receipt Date: 20130521
  Transmission Date: 20140414
  Serious: No
  Sender: FDA-Public Use
  Company Number: US-009507513-1303USA011095

PATIENT
  Age: 60 Year
  Sex: Female
  Weight: 66.67 kg

DRUGS (1)
  1. PROVENTIL [Suspect]
     Dosage: TWO PUFFS ONCE IN THE EVENING
     Route: 055

REACTIONS (3)
  - Drug dose omission [Unknown]
  - Product quality issue [Unknown]
  - No adverse event [Unknown]
